FAERS Safety Report 7444475-2 (Version None)
Quarter: 2011Q2

REPORT INFORMATION
  Report Type: 
  Country: None (occurrence: None)
  Receive Date: 20110429
  Receipt Date: 20110427
  Transmission Date: 20111010
  Serious: Yes (Other)
  Sender: FDA-Public Use
  Company Number: US-CEPHALON-2011002067

PATIENT
  Age: 22 Year
  Sex: Male

DRUGS (3)
  1. MODAFINIL [Suspect]
     Indication: NARCOLEPSY
     Route: 048
  2. VENLAFAXINE [Suspect]
  3. MODAFINIL [Suspect]
     Route: 048

REACTIONS (2)
  - BIPOLAR DISORDER [None]
  - MANIA [None]
